FAERS Safety Report 4304536-3 (Version None)
Quarter: 2004Q1

REPORT INFORMATION
  Report Type: 
  Country: None (occurrence: None)
  Receive Date: 20040224
  Receipt Date: 20040216
  Transmission Date: 20041129
  Serious: Yes (Other)
  Sender: FDA-Public Use
  Company Number: ES-JNJFOC-20040203299

PATIENT
  Age: 27 Year
  Sex: Female

DRUGS (2)
  1. REMICADE [Suspect]
     Indication: CROHN'S DISEASE
     Dosage: 5 MG/KG, INTRAVENOUS
     Route: 042
     Dates: start: 20040101, end: 20040212
  2. AZATHIOPRINE [Concomitant]

REACTIONS (6)
  - CONJUNCTIVAL HYPERAEMIA [None]
  - DYSPHONIA [None]
  - ERYTHEMA [None]
  - PHARYNGOLARYNGEAL PAIN [None]
  - PYREXIA [None]
  - RASH GENERALISED [None]
